FAERS Safety Report 9220713 (Version 2)
Quarter: 2013Q2

REPORT INFORMATION
  Report Type: Spontaneous
  Country: US (occurrence: US)
  Receive Date: 20130409
  Receipt Date: 20130419
  Transmission Date: 20140414
  Serious: Yes (Other)
  Sender: FDA-Public Use
  Company Number: US-009507513-1304USA002981

PATIENT
  Sex: Female

DRUGS (1)
  1. SINEMET [Suspect]
     Indication: PARKINSON^S DISEASE
     Dosage: UNK
     Dates: start: 200604

REACTIONS (10)
  - Loss of consciousness [Unknown]
  - Abasia [Unknown]
  - Pain in extremity [Unknown]
  - Trismus [Unknown]
  - Blood immunoglobulin E increased [Unknown]
  - Drug intolerance [Unknown]
  - Feeling abnormal [Unknown]
  - Pain in extremity [Unknown]
  - Headache [Unknown]
  - Fatigue [Unknown]
